FAERS Safety Report 9014627 (Version 1)
Quarter: 2013Q1

REPORT INFORMATION
  Report Type: Spontaneous
  Country: GB (occurrence: GB)
  Receive Date: 20130115
  Receipt Date: 20130115
  Transmission Date: 20140127
  Serious: Yes (Other)
  Sender: FDA-Public Use
  Company Number: PHHY2013GB001757

PATIENT
  Age: 57 Year
  Sex: Male
  Weight: 80 kg

DRUGS (4)
  1. ATENOLOL [Suspect]
     Indication: HYPERTENSION
     Dosage: 50 MG, QD
     Route: 048
     Dates: start: 2002, end: 20120921
  2. CETIRIZINE [Concomitant]
     Indication: SEASONAL ALLERGY
     Dosage: 10 MG, QD
     Route: 048
     Dates: start: 2011
  3. SENNA [Concomitant]
     Indication: CONSTIPATION
     Dosage: 7.5 MG, BID 2 AT NIGHT AS REQUIRED. CONTINUING.
     Route: 048
     Dates: start: 2011
  4. BENDROFLUMETHIAZIDE [Concomitant]
     Indication: HYPERTENSION
     Dosage: 2.5 MG, QD
     Route: 048
     Dates: start: 2002, end: 20120928

REACTIONS (1)
  - Cough [Recovered/Resolved]
